FAERS Safety Report 23294118 (Version 2)
Quarter: 2024Q1

REPORT INFORMATION
  Report Type: Spontaneous
  Country: US (occurrence: US)
  Receive Date: 20231213
  Receipt Date: 20240122
  Transmission Date: 20240410
  Serious: No
  Sender: FDA-Public Use
  Company Number: US-PFIZER INC-202300433556

PATIENT
  Age: 62 Year
  Sex: Female
  Weight: 75.737 kg

DRUGS (6)
  1. PAXLOVID [Suspect]
     Active Substance: NIRMATRELVIR\RITONAVIR
     Indication: COVID-19 treatment
     Dosage: UNK, 1X/DAY
     Dates: start: 20231125, end: 20231129
  2. PANTOPRAZOLE [Concomitant]
     Active Substance: PANTOPRAZOLE
     Dosage: 40 MG, 1X/DAY
     Dates: start: 20231117
  3. KLONOPIN [Concomitant]
     Active Substance: CLONAZEPAM
     Dosage: 1 MG, 1-2 TIMES A DAY
  4. EZETIMIBE [Concomitant]
     Active Substance: EZETIMIBE
     Dosage: 10 MG, 1X/DAY
  5. LEVOTHYROXINE SODIUM [Concomitant]
     Active Substance: LEVOTHYROXINE SODIUM
     Dosage: 15 MG, 1X/DAY
  6. TRELEGY ELLIPTA [Concomitant]
     Active Substance: FLUTICASONE FUROATE\UMECLIDINIUM BROMIDE\VILANTEROL TRIFENATATE
     Indication: Asthma
     Dosage: USUALLY 2-3 TIMES A WEEK

REACTIONS (5)
  - COVID-19 [Not Recovered/Not Resolved]
  - Disease recurrence [Not Recovered/Not Resolved]
  - Taste disorder [Unknown]
  - Parosmia [Unknown]
  - Product use issue [Unknown]

NARRATIVE: CASE EVENT DATE: 20231125
